FAERS Safety Report 13301290 (Version 3)
Quarter: 2017Q2

REPORT INFORMATION
  Report Type: Report from Study
  Country: US (occurrence: US)
  Receive Date: 20170307
  Receipt Date: 20170503
  Transmission Date: 20170830
  Serious: Yes (Other)
  Sender: FDA-Public Use
  Company Number: US-ROCHE-1901003

PATIENT
  Sex: Male

DRUGS (5)
  1. ZELBORAF [Suspect]
     Active Substance: VEMURAFENIB
     Indication: SKIN CANCER
  2. ZELBORAF [Suspect]
     Active Substance: VEMURAFENIB
     Indication: SALIVARY GLAND CANCER
  3. NEXAVAR [Concomitant]
     Active Substance: SORAFENIB
     Dosage: NO
     Route: 065
  4. RADIATION THERAPY [Concomitant]
     Active Substance: RADIATION THERAPY
     Dosage: 5 DAYS ONLY
     Route: 065
  5. ZELBORAF [Suspect]
     Active Substance: VEMURAFENIB
     Indication: SKIN CANCER
     Route: 048
     Dates: end: 201702

REACTIONS (12)
  - Deafness [Not Recovered/Not Resolved]
  - Hyperhidrosis [Recovering/Resolving]
  - Pain in extremity [Not Recovered/Not Resolved]
  - Alopecia [Recovering/Resolving]
  - Gait disturbance [Not Recovered/Not Resolved]
  - Lung disorder [Not Recovered/Not Resolved]
  - Metastases to liver [Unknown]
  - Hepatic cancer [Not Recovered/Not Resolved]
  - Peripheral swelling [Unknown]
  - Pain in extremity [Recovered/Resolved]
  - Neoplasm skin [Recovered/Resolved]
  - Neoplasm malignant [Unknown]
